FAERS Safety Report 8851243 (Version 1)
Quarter: 2012Q4

REPORT INFORMATION
  Report Type: 
  Country: US (occurrence: US)
  Receive Date: 20121019
  Receipt Date: 20121019
  Transmission Date: 20130627
  Serious: No
  Sender: FDA-Public Use
  Company Number: US-B.I. PHARMACEUTICALS,INC./RIDGEFIELD-2012-BP-23929BP

PATIENT
  Age: 76 Year
  Sex: Male

DRUGS (24)
  1. SPIRIVA [Suspect]
     Indication: CHRONIC OBSTRUCTIVE PULMONARY DISEASE
     Dosage: 18 mcg
     Route: 055
     Dates: start: 20120924
  2. SPIRIVA [Suspect]
     Indication: DYSPNOEA
  3. NITROGLYCERINE [Concomitant]
     Indication: CARDIAC DISORDER
     Dates: start: 2011
  4. FINASTERIDE [Concomitant]
     Indication: PROSTATOMEGALY
     Dosage: 5 mg
     Route: 048
     Dates: start: 2004
  5. TRAZODONE [Concomitant]
     Indication: SLEEP DISORDER
     Route: 048
     Dates: start: 1992
  6. METFORMIN [Concomitant]
     Indication: DIABETES MELLITUS
     Dosage: 1500 mg
     Route: 048
     Dates: start: 2002
  7. FUROSEMIDE [Concomitant]
     Indication: SWELLING
     Dosage: 40 mg
     Route: 048
     Dates: start: 2006
  8. GLIPIZIDE [Concomitant]
     Indication: DIABETES MELLITUS
     Dosage: 20 mg
     Route: 048
     Dates: start: 2006
  9. POTASSIUM [Concomitant]
     Indication: MINERAL SUPPLEMENTATION
     Dosage: 10 mEq
     Route: 048
     Dates: start: 2007
  10. RISPERIDONE [Concomitant]
     Indication: MOOD ALTERED
     Dosage: 3 mg
     Route: 048
     Dates: start: 1997
  11. SIMVASTATIN [Concomitant]
     Indication: BLOOD CHOLESTEROL INCREASED
     Dosage: 10 mg
     Route: 048
     Dates: start: 2002
  12. LISINOPRIL [Concomitant]
     Indication: HYPERTENSION
     Dosage: 80 mg
     Route: 048
  13. GABAPENTIN [Concomitant]
     Indication: PAIN IN EXTREMITY
     Route: 048
     Dates: start: 201203
  14. PRIMIDONE [Concomitant]
     Indication: TREMOR
     Dosage: 150 mg
     Route: 048
     Dates: start: 2008
  15. KETOTIFEN [Concomitant]
     Indication: EYE PRURITUS
     Dates: start: 2011
  16. OMEPRAZOLE [Concomitant]
     Indication: DYSPEPSIA
     Dosage: 40 mg
     Route: 048
     Dates: start: 2007
  17. HYDROCODONE [Concomitant]
     Indication: BACK PAIN
     Route: 048
     Dates: start: 2004
  18. TERAZOSIN HCL [Concomitant]
     Indication: PROSTATOMEGALY
     Dosage: 10 mg
     Route: 048
     Dates: start: 2006
  19. DIVALPROEX [Concomitant]
     Indication: MOOD ALTERED
     Dosage: 500 mg
     Route: 048
     Dates: start: 2010
  20. METOPROLOL [Concomitant]
     Indication: HYPERTENSION
     Dosage: 200 mg
     Route: 048
     Dates: start: 2002
  21. METOPROLOL [Concomitant]
     Indication: CARDIAC DISORDER
  22. NIFEDIPINE [Concomitant]
     Indication: HYPERTENSION
     Dosage: 180 mg
     Route: 048
     Dates: start: 201205
  23. ALBUTEROL [Concomitant]
     Indication: INHALATION THERAPY
     Route: 055
     Dates: start: 201208
  24. WARFARIN [Concomitant]
     Indication: ANTICOAGULANT THERAPY
     Dosage: 5 mg
     Route: 048
     Dates: start: 2010

REACTIONS (6)
  - Dyspnoea [Not Recovered/Not Resolved]
  - Inhalation therapy [Not Recovered/Not Resolved]
  - Therapeutic response delayed [Not Recovered/Not Resolved]
  - Suffocation feeling [Not Recovered/Not Resolved]
  - Hypopnoea [Not Recovered/Not Resolved]
  - Dyspnoea [Not Recovered/Not Resolved]
